FAERS Safety Report 23762172 (Version 1)
Quarter: 2024Q2

REPORT INFORMATION
  Report Type: Spontaneous
  Country: US (occurrence: US)
  Receive Date: 20240419
  Receipt Date: 20240419
  Transmission Date: 20240716
  Serious: Yes (Hospitalization, Other)
  Sender: FDA-Public Use
  Company Number: US-HIKMA PHARMACEUTICALS USA INC.-US-H14001-23-65499

PATIENT
  Age: 64 Year
  Sex: Female
  Weight: 79.36 kg

DRUGS (3)
  1. OCTREOTIDE [Suspect]
     Active Substance: OCTREOTIDE\OCTREOTIDE ACETATE
     Indication: Product used for unknown indication
     Dosage: UNKNOWN
     Route: 065
  2. XERMELO [Suspect]
     Active Substance: TELOTRISTAT ETHYL
     Dosage: 250 MILLIGRAM, BID
     Route: 048
  3. XERMELO [Suspect]
     Active Substance: TELOTRISTAT ETHYL
     Indication: Carcinoid syndrome
     Dosage: 250 MILLIGRAM, TID
     Route: 048

REACTIONS (4)
  - Constipation [Unknown]
  - Diarrhoea [Unknown]
  - Abdominal pain upper [Unknown]
  - Adverse drug reaction [Unknown]
